FAERS Safety Report 8594543-7 (Version None)
Quarter: 2012Q3

REPORT INFORMATION
  Report Type: 
  Country: None (occurrence: None)
  Receive Date: 20120815
  Receipt Date: 20120808
  Transmission Date: 20120928
  Serious: Yes (Other)
  Sender: FDA-Public Use
  Company Number: BR-US-EMD SERONO, INC.-7125050

PATIENT
  Sex: Male

DRUGS (2)
  1. RANITIDINE [Concomitant]
     Indication: PRODUCT USED FOR UNKNOWN INDICATION
  2. REBIF [Suspect]
     Indication: PRIMARY PROGRESSIVE MULTIPLE SCLEROSIS
     Dates: start: 20110620

REACTIONS (4)
  - OFF LABEL USE [None]
  - VISUAL IMPAIRMENT [None]
  - ARTHRALGIA [None]
  - BALANCE DISORDER [None]
